FAERS Safety Report 11971517 (Version 1)
Quarter: 2016Q1

REPORT INFORMATION
  Report Type: Spontaneous
  Country: US (occurrence: US)
  Receive Date: 20160128
  Receipt Date: 20160128
  Transmission Date: 20160526
  Serious: Yes (Hospitalization)
  Sender: FDA-Public Use
  Company Number: US-WEST-WARD PHARMACEUTICALS CORP.-US-H14001-16-00156

PATIENT
  Age: 55 Year
  Sex: Female
  Weight: 64 kg

DRUGS (5)
  1. REMIFENTANIL [Suspect]
     Active Substance: REMIFENTANIL
     Indication: GENERAL ANAESTHESIA
     Route: 065
  2. ROCURONIUM [Suspect]
     Active Substance: ROCURONIUM BROMIDE
     Indication: GENERAL ANAESTHESIA
     Route: 065
  3. FENTANYL. [Suspect]
     Active Substance: FENTANYL
     Indication: GENERAL ANAESTHESIA
     Route: 065
  4. PROPOFOL. [Suspect]
     Active Substance: PROPOFOL
     Indication: GENERAL ANAESTHESIA
     Route: 065
  5. SEVOLFURANE [Suspect]
     Active Substance: SEVOFLURANE
     Indication: GENERAL ANAESTHESIA
     Route: 065

REACTIONS (6)
  - Subarachnoid haemorrhage [None]
  - Vascular procedure complication [None]
  - Hypothermia [Recovered/Resolved]
  - Cerebral artery perforation [None]
  - Delayed recovery from anaesthesia [None]
  - Drug effect delayed [Recovered/Resolved]
